FAERS Safety Report 4795406-5 (Version None)
Quarter: 2005Q3

REPORT INFORMATION
  Report Type: 
  Country: None (occurrence: None)
  Receive Date: 20050929
  Receipt Date: 20050729
  Transmission Date: 20060218
  Serious: No
  Sender: FDA-Public Use
  Company Number: 05P-163-0307052-00

PATIENT
  Age: 53 Year
  Sex: Female

DRUGS (5)
  1. HUMIRA [Suspect]
     Indication: RHEUMATOID ARTHRITIS
     Dosage: 40 MG, SUBCUTANEOUS
     Route: 058
     Dates: start: 20041201
  2. LANSOPRAZOLE [Concomitant]
  3. PREDNISONE [Concomitant]
  4. METHOTREXATE SODIUM [Concomitant]
  5. FOLIC ACID [Concomitant]

REACTIONS (1)
  - RASH [None]
